FAERS Safety Report 16745204 (Version 15)
Quarter: 2020Q1

REPORT INFORMATION
  Report Type: Report from Study
  Country: RU (occurrence: RU)
  Receive Date: 20190827
  Receipt Date: 20200106
  Transmission Date: 20200409
  Serious: Yes (Hospitalization)
  Sender: FDA-Public Use
  Company Number: RU-EISAI MEDICAL RESEARCH-EC-2019-061212

PATIENT
  Age: 72 Year
  Sex: Female
  Weight: 103 kg

DRUGS (9)
  1. PEMBROLIZUMAB. [Suspect]
     Active Substance: PEMBROLIZUMAB
     Route: 041
     Dates: start: 20190830
  2. NORMODIPINE [Concomitant]
     Active Substance: AMLODIPINE BESYLATE
     Dates: start: 201204
  3. LENVATINIB [Suspect]
     Active Substance: LENVATINIB
     Route: 048
     Dates: start: 20190804, end: 20190816
  4. VALSACOR [Concomitant]
     Active Substance: VALSARTAN
     Dates: start: 201704
  5. CONCOR [Concomitant]
     Active Substance: BISOPROLOL FUMARATE
     Dates: start: 200903
  6. LENVATINIB [Suspect]
     Active Substance: LENVATINIB
     Route: 048
     Dates: start: 20190830
  7. KETANOV [Concomitant]
     Active Substance: KETOROLAC TROMETHAMINE
     Dates: start: 201904
  8. LENVATINIB [Suspect]
     Active Substance: LENVATINIB
     Indication: TRANSITIONAL CELL CARCINOMA
     Route: 048
     Dates: start: 20190730, end: 20190802
  9. PEMBROLIZUMAB. [Suspect]
     Active Substance: PEMBROLIZUMAB
     Indication: TRANSITIONAL CELL CARCINOMA
     Route: 041
     Dates: start: 20190730, end: 20190730

REACTIONS (1)
  - Large intestinal haemorrhage [Recovered/Resolved]

NARRATIVE: CASE EVENT DATE: 20190816
